FAERS Safety Report 6915380-2 (Version None)
Quarter: 2010Q3

REPORT INFORMATION
  Report Type: 
  Country: None (occurrence: None)
  Receive Date: 20100809
  Receipt Date: 20100406
  Transmission Date: 20110219
  Serious: No
  Sender: FDA-Public Use
  Company Number: US-ABBOTT-10P-163-0638189-00

PATIENT
  Sex: Male
  Weight: 89.892 kg

DRUGS (6)
  1. DEPAKOTE ER [Suspect]
     Indication: CONVULSION
     Dosage: 500MG IN AM + 1500MG IN EVENING
     Route: 048
     Dates: end: 20100402
  2. DEPAKOTE ER [Suspect]
     Indication: BIPOLAR DISORDER
  3. DEPAKOTE [Suspect]
     Indication: CONVULSION
     Dosage: 500MG IN AM + 1500MG IN EVENING
     Route: 048
  4. DEPAKOTE [Suspect]
     Indication: BIPOLAR DISORDER
  5. GIADON [Concomitant]
     Indication: CONVULSION
  6. GIADON [Concomitant]
     Indication: BIPOLAR DISORDER

REACTIONS (2)
  - BREAST ENLARGEMENT [None]
  - CHEST PAIN [None]
